FAERS Safety Report 24380134 (Version 2)
Quarter: 2024Q4

REPORT INFORMATION
  Report Type: Report from Study
  Country: US (occurrence: US)
  Receive Date: 20240930
  Receipt Date: 20241024
  Transmission Date: 20250114
  Serious: No
  Sender: SANDOZ
  Company Number: US-SANDOZ-SDZ2024US082175

PATIENT
  Age: 11 Year
  Sex: Male

DRUGS (12)
  1. OMNITROPE [Suspect]
     Active Substance: SOMATROPIN
     Indication: Short stature
     Dosage: 0.9 MG (MILLIGRAM) ONCE DAILY
     Route: 058
  2. OMNITROPE [Suspect]
     Active Substance: SOMATROPIN
     Indication: Short stature
     Dosage: 0.9 MG (MILLIGRAM) ONCE DAILY
     Route: 058
  3. OMNITROPE [Suspect]
     Active Substance: SOMATROPIN
     Indication: Short stature
     Dosage: 0.9 MG (MILLIGRAM) ONCE DAILY
     Route: 058
  4. OMNITROPE [Suspect]
     Active Substance: SOMATROPIN
     Indication: Short stature
     Dosage: 0.9 MG (MILLIGRAM) ONCE DAILY
     Route: 058
  5. OMNITROPE [Suspect]
     Active Substance: SOMATROPIN
     Dosage: 1 MG  INCREASED DOSE
     Route: 058
     Dates: start: 20240920, end: 20240923
  6. OMNITROPE [Suspect]
     Active Substance: SOMATROPIN
     Dosage: 1 MG  INCREASED DOSE
     Route: 058
     Dates: start: 20240920, end: 20240923
  7. OMNITROPE [Suspect]
     Active Substance: SOMATROPIN
     Dosage: 1 MG  INCREASED DOSE
     Route: 058
     Dates: start: 20240920, end: 20240923
  8. OMNITROPE [Suspect]
     Active Substance: SOMATROPIN
     Dosage: 1 MG  INCREASED DOSE
     Route: 058
     Dates: start: 20240920, end: 20240923
  9. OMNITROPE [Suspect]
     Active Substance: SOMATROPIN
     Dosage: 1 MG; 6 DAYS A WEEK; OTHER
     Route: 058
     Dates: start: 20240920, end: 20241022
  10. OMNITROPE [Suspect]
     Active Substance: SOMATROPIN
     Dosage: 1 MG; 6 DAYS A WEEK; OTHER
     Route: 058
     Dates: start: 20240920, end: 20241022
  11. OMNITROPE [Suspect]
     Active Substance: SOMATROPIN
     Dosage: 1 MG; 6 DAYS A WEEK; OTHER
     Route: 058
     Dates: start: 20240920, end: 20241022
  12. OMNITROPE [Suspect]
     Active Substance: SOMATROPIN
     Dosage: 1 MG; 6 DAYS A WEEK; OTHER
     Route: 058
     Dates: start: 20240920, end: 20241022

REACTIONS (5)
  - Injection site discharge [Unknown]
  - Incorrect dose administered by device [Unknown]
  - Product dispensing error [Unknown]
  - Device delivery system issue [Unknown]
  - Product availability issue [Unknown]

NARRATIVE: CASE EVENT DATE: 20240920
